FAERS Safety Report 8505134-8 (Version None)
Quarter: 2012Q2

REPORT INFORMATION
  Report Type: 
  Country: None (occurrence: None)
  Receive Date: 20120405
  Receipt Date: 20100621
  Transmission Date: 20120825
  Serious: Yes (Other)
  Sender: FDA-Public Use
  Company Number: PHHY2010US38329

PATIENT
  Age: 67 Year
  Sex: Female
  Weight: 58 kg

DRUGS (6)
  1. DILANTIN [Concomitant]
  2. ATENOLOL [Concomitant]
  3. RECLAST [Suspect]
     Indication: OSTEOPOROSIS
     Dosage: 5 MG ONCE A YEAR, INFUSION
     Dates: start: 20080304, end: 20100406
  4. CYANOCOBALAMIN [Concomitant]
  5. FIORICET [Concomitant]
  6. CYANOCOBALAMIN [Concomitant]

REACTIONS (1)
  - BONE DENSITY DECREASED [None]
